FAERS Safety Report 7981744-1 (Version None)
Quarter: 2011Q4

REPORT INFORMATION
  Report Type: 
  Country: None (occurrence: None)
  Receive Date: 20111215
  Receipt Date: 20111209
  Transmission Date: 20120403
  Serious: No
  Sender: FDA-Public Use
  Company Number: US-JNJFOC-20111202833

PATIENT
  Sex: Female
  Weight: 65.77 kg

DRUGS (1)
  1. LEVOFLOXACIN [Suspect]
     Indication: ARTHRALGIA
     Route: 065

REACTIONS (1)
  - ADVERSE EVENT [None]
